FAERS Safety Report 20819255 (Version 1)
Quarter: 2022Q2

REPORT INFORMATION
  Report Type: Spontaneous
  Country: US (occurrence: None)
  Receive Date: 20220511
  Receipt Date: 20220511
  Transmission Date: 20220721
  Serious: Yes (Other)
  Sender: FDA-Public Use
  Company Number: None

PATIENT
  Age: 77 Year
  Sex: Male
  Weight: 101.25 kg

DRUGS (5)
  1. MYRBETRIQ [Suspect]
     Active Substance: MIRABEGRON
     Indication: Bladder disorder
     Dosage: OTHER QUANTITY : 1 CAPSULE(S);?FREQUENCY : DAILY;?
     Route: 048
     Dates: start: 20220318, end: 20220409
  2. MYRBETRIQ [Suspect]
     Active Substance: MIRABEGRON
     Indication: Reduced bladder capacity
  3. NATURAL LATEX RUBBER [Concomitant]
     Active Substance: NATURAL LATEX RUBBER
  4. centrum [Concomitant]
  5. FISH OIL [Suspect]
     Active Substance: FISH OIL

REACTIONS (2)
  - Constipation [None]
  - Large intestinal obstruction [None]

NARRATIVE: CASE EVENT DATE: 20220409
